FAERS Safety Report 8980538 (Version 1)
Quarter: 2012Q4

REPORT INFORMATION
  Report Type: 
  Country: US (occurrence: US)
  Receive Date: 20121221
  Receipt Date: 20121221
  Transmission Date: 20130627
  Serious: Yes (Hospitalization)
  Sender: FDA-Public Use
  Company Number: US-GENZYME-FABR-1002922

PATIENT
  Age: 53 Year
  Sex: Male

DRUGS (1)
  1. FABRAZYME [Suspect]
     Indication: FABRY^S DISEASE
     Dosage: 70 mg, q2w
     Route: 042
     Dates: start: 20120315

REACTIONS (4)
  - Dyspepsia [Unknown]
  - Chest discomfort [Unknown]
  - Paraesthesia [Unknown]
  - Tachycardia [Unknown]
